FAERS Safety Report 20564507 (Version 6)
Quarter: 2024Q3

REPORT INFORMATION
  Report Type: Spontaneous
  Country: US (occurrence: US)
  Receive Date: 20220308
  Receipt Date: 20240809
  Transmission Date: 20241017
  Serious: Yes (Hospitalization, Disabling, Other)
  Sender: ORGANON
  Company Number: US-ORGANON-O2203USA000497

PATIENT
  Sex: Male
  Weight: 107.48 kg

DRUGS (1)
  1. SINGULAIR [Suspect]
     Active Substance: MONTELUKAST SODIUM
     Dosage: 1 TAB(S) ORALLY ONCE A DAY
     Route: 048
     Dates: start: 2008, end: 2012

REACTIONS (22)
  - Neuropsychological symptoms [Not Recovered/Not Resolved]
  - Depression [Not Recovered/Not Resolved]
  - Intentional self-injury [Unknown]
  - Bipolar disorder [Not Recovered/Not Resolved]
  - Schizoaffective disorder [Not Recovered/Not Resolved]
  - Suicidal ideation [Recovered/Resolved]
  - Asthma [Recovering/Resolving]
  - Hallucination [Unknown]
  - Type 2 diabetes mellitus [Unknown]
  - Groin abscess [Unknown]
  - Affective disorder [Unknown]
  - Mental disorder [Unknown]
  - Homicidal ideation [Unknown]
  - Psychotic disorder [Unknown]
  - Somnolence [Unknown]
  - Insomnia [Unknown]
  - Social avoidant behaviour [Unknown]
  - Antisocial behaviour [Unknown]
  - Hypertension [Unknown]
  - Pain in extremity [Unknown]
  - Carpal tunnel syndrome [Unknown]
  - Wheezing [Unknown]

NARRATIVE: CASE EVENT DATE: 20120101
